FAERS Safety Report 8960493 (Version 1)
Quarter: 2012Q4

REPORT INFORMATION
  Report Type: Spontaneous
  Country: US (occurrence: None)
  Receive Date: 20121207
  Receipt Date: 20121207
  Transmission Date: 20130627
  Serious: No
  Sender: FDA-Public Use
  Company Number: None

PATIENT
  Age: 25 Year
  Sex: Male
  Weight: 63.5 kg

DRUGS (1)
  1. MIRENA IUD [Suspect]

REACTIONS (7)
  - Device dislocation [None]
  - Uterine perforation [None]
  - Device dislocation [None]
  - Pregnancy [None]
  - Maternal exposure before pregnancy [None]
  - Postpartum haemorrhage [None]
  - Uterine disorder [None]
